FAERS Safety Report 9932668 (Version 1)
Quarter: 2014Q1

REPORT INFORMATION
  Report Type: Spontaneous
  Country: US (occurrence: US)
  Receive Date: 20140228
  Receipt Date: 20140228
  Transmission Date: 20141002
  Serious: No
  Sender: FDA-Public Use
  Company Number: US-ABBVIE-13P-163-1062316-00

PATIENT
  Age: 81 Year
  Sex: Male
  Weight: 83.08 kg

DRUGS (2)
  1. ANDROGEL [Suspect]
     Indication: BLOOD TESTOSTERONE DECREASED
     Dosage: 2 PUMPS
     Route: 061
     Dates: start: 201207
  2. CIALIS [Concomitant]
     Indication: BENIGN PROSTATIC HYPERPLASIA

REACTIONS (5)
  - Incorrect dose administered [Recovered/Resolved]
  - Drug ineffective [Not Recovered/Not Resolved]
  - Asthenia [Recovered/Resolved]
  - Blood testosterone abnormal [Unknown]
  - Malaise [Recovered/Resolved]
